FAERS Safety Report 17112604 (Version 1)
Quarter: 2019Q4

REPORT INFORMATION
  Report Type: Spontaneous
  Country: ES (occurrence: ES)
  Receive Date: 20191204
  Receipt Date: 20191204
  Transmission Date: 20200122
  Serious: Yes (Other)
  Sender: FDA-Public Use
  Company Number: ES-MYLANLABS-2019M1118419

PATIENT
  Age: 6 Year
  Sex: Male

DRUGS (2)
  1. RUBIFEN                            /00083802/ [Suspect]
     Active Substance: METHYLPHENIDATE HYDROCHLORIDE
     Indication: ATTENTION DEFICIT/HYPERACTIVITY DISORDER
     Dosage: 5 MILLIGRAM, QD
     Route: 048
     Dates: start: 201703, end: 201707
  2. METHYLPHENIDATE. [Suspect]
     Active Substance: METHYLPHENIDATE
     Indication: ATTENTION DEFICIT/HYPERACTIVITY DISORDER
     Dosage: SE COMENZ? CON 10 MG, SE SUBI? A 20 Y SE BAJO DE NUEVO A 10, DESPU?S SE RETIR?
     Route: 048
     Dates: start: 20161216, end: 20170717

REACTIONS (1)
  - Trichotillomania [Recovered/Resolved]

NARRATIVE: CASE EVENT DATE: 201703
